FAERS Safety Report 9780360 (Version 1)
Quarter: 2013Q4

REPORT INFORMATION
  Report Type: Spontaneous
  Country: GR (occurrence: GR)
  Receive Date: 20131224
  Receipt Date: 20131224
  Transmission Date: 20140711
  Serious: Yes (Hospitalization, Other)
  Sender: FDA-Public Use
  Company Number: GR-ROCHE-1322730

PATIENT
  Age: 32 Year
  Sex: Female

DRUGS (2)
  1. MABTHERA [Suspect]
     Indication: SYSTEMIC LUPUS ERYTHEMATOSUS
     Route: 065
     Dates: start: 20131209
  2. MABTHERA [Suspect]
     Route: 065
     Dates: start: 20131213

REACTIONS (7)
  - Malaise [Not Recovered/Not Resolved]
  - Fatigue [Not Recovered/Not Resolved]
  - Cell death [Not Recovered/Not Resolved]
  - Hypotension [Not Recovered/Not Resolved]
  - Flushing [Not Recovered/Not Resolved]
  - Arthritis [Not Recovered/Not Resolved]
  - Off label use [Unknown]
